FAERS Safety Report 13925229 (Version 1)
Quarter: 2017Q3

REPORT INFORMATION
  Report Type: Report from Study
  Country: DE (occurrence: DE)
  Receive Date: 20170831
  Receipt Date: 20170831
  Transmission Date: 20171127
  Serious: Yes (Hospitalization)
  Sender: FDA-Public Use
  Company Number: DE-ROCHE-1987314

PATIENT
  Age: 74 Year
  Sex: Male
  Weight: 63 kg

DRUGS (1)
  1. PIRFENIDONE. [Suspect]
     Active Substance: PIRFENIDONE
     Indication: IDIOPATHIC PULMONARY FIBROSIS
     Route: 048
     Dates: start: 20150123

REACTIONS (5)
  - Leukopenia [Unknown]
  - Sepsis [Recovered/Resolved]
  - Anaemia [Unknown]
  - Pneumonia aspiration [Recovered/Resolved]
  - Dysphagia [Unknown]

NARRATIVE: CASE EVENT DATE: 20160121
